FAERS Safety Report 6775753-8 (Version None)
Quarter: 2010Q2

REPORT INFORMATION
  Report Type: 
  Country: None (occurrence: None)
  Receive Date: 20100617
  Receipt Date: 20100608
  Transmission Date: 20101027
  Serious: Yes (Other)
  Sender: FDA-Public Use
  Company Number: PHHY2009CA53543

PATIENT
  Sex: Female

DRUGS (2)
  1. ZOMETA [Suspect]
     Indication: METASTASES TO BONE
     Dosage: 4 MG, EVERY 4 WEEKS
     Route: 042
     Dates: start: 20080122
  2. ZOMETA [Suspect]
     Dosage: 4 MG, QMO
     Route: 042
     Dates: start: 20090910

REACTIONS (10)
  - BLOOD CREATININE INCREASED [None]
  - CARBOHYDRATE ANTIGEN 125 INCREASED [None]
  - CARBOHYDRATE ANTIGEN 15-3 INCREASED [None]
  - DIPLOPIA [None]
  - GLOMERULAR FILTRATION RATE DECREASED [None]
  - LYMPHOCYTE COUNT INCREASED [None]
  - METAMYELOCYTE COUNT INCREASED [None]
  - NEUTROPHIL COUNT INCREASED [None]
  - VISUAL IMPAIRMENT [None]
  - WHITE BLOOD CELL COUNT INCREASED [None]
